FAERS Safety Report 23385623 (Version 1)
Quarter: 2024Q1

REPORT INFORMATION
  Report Type: Spontaneous
  Country: BY (occurrence: BY)
  Receive Date: 20240110
  Receipt Date: 20240110
  Transmission Date: 20240409
  Serious: Yes (Death, Life-Threatening)
  Sender: FDA-Public Use
  Company Number: BY-JNJFOC-20240115416

PATIENT
  Age: 69 Year
  Sex: Female
  Weight: 75 kg

DRUGS (9)
  1. SIRTURO [Suspect]
     Active Substance: BEDAQUILINE FUMARATE
     Indication: Tuberculosis
     Dosage: 3 TIMES IN A WEEK
     Route: 048
     Dates: start: 20220513, end: 20221027
  2. PRETOMANID [Suspect]
     Active Substance: PRETOMANID
     Indication: Tuberculosis
     Dosage: ONCE DAILY
     Route: 048
     Dates: start: 20220513, end: 20221027
  3. LINEZOLID [Suspect]
     Active Substance: LINEZOLID
     Indication: Tuberculosis
     Dosage: 600 THEN 300 MG DAILY
     Route: 048
     Dates: start: 20220513, end: 20221027
  4. MOXIFLOXACIN [Suspect]
     Active Substance: MOXIFLOXACIN
     Indication: Tuberculosis
     Dosage: DAILY
     Route: 048
     Dates: start: 20220513, end: 20221027
  5. METFORMIN [Concomitant]
     Active Substance: METFORMIN HYDROCHLORIDE
     Indication: Diabetes mellitus
     Dosage: DAILY
     Route: 065
     Dates: start: 20220513, end: 20230817
  6. GLICLAZIDE [Concomitant]
     Active Substance: GLICLAZIDE
     Indication: Diabetes mellitus
     Dosage: DAILY
     Route: 065
     Dates: start: 20220513, end: 20230817
  7. ASPIRIN [Concomitant]
     Active Substance: ASPIRIN
     Indication: Myocardial ischaemia
     Dosage: DAILY
     Route: 065
     Dates: start: 20220513, end: 20230817
  8. TORSEMIDE [Concomitant]
     Active Substance: TORSEMIDE
     Indication: Myocardial ischaemia
     Dosage: DAILY
     Dates: start: 20220513, end: 20230817
  9. VALSARTAN [Concomitant]
     Active Substance: VALSARTAN
     Indication: Myocardial ischaemia
     Route: 065
     Dates: start: 20220513, end: 20230817

REACTIONS (1)
  - Myocardial infarction [Fatal]

NARRATIVE: CASE EVENT DATE: 20230817
